FAERS Safety Report 4667818-1 (Version None)
Quarter: 2005Q2

REPORT INFORMATION
  Report Type: 
  Country: None (occurrence: None)
  Receive Date: 20050519
  Receipt Date: 20050519
  Transmission Date: 20051028
  Serious: Yes (Disabling, Other)
  Sender: FDA-Public Use
  Company Number: None

PATIENT
  Age: 17 Year
  Sex: Male
  Weight: 77.1115 kg

DRUGS (8)
  1. CIPROFLOXACIN [Suspect]
     Indication: PROSTATITIS
     Dosage: 500 MG BID ORAL
     Route: 048
  2. VALTREX [Concomitant]
  3. PLAQUENIL [Concomitant]
  4. ALEVE [Concomitant]
  5. STRATTERA [Concomitant]
  6. LAMICTAL [Concomitant]
  7. LEXAPRO [Concomitant]
  8. PROSCAR [Concomitant]

REACTIONS (7)
  - DYSKINESIA [None]
  - EMOTIONAL DISORDER [None]
  - FATIGUE [None]
  - HYPOAESTHESIA [None]
  - MANIA [None]
  - PAIN [None]
  - PARKINSONISM [None]
